FAERS Safety Report 25554241 (Version 2)
Quarter: 2025Q3

REPORT INFORMATION
  Report Type: Spontaneous
  Country: JP (occurrence: JP)
  Receive Date: 20250715
  Receipt Date: 20250716
  Transmission Date: 20251020
  Serious: Yes (Other)
  Sender: PFIZER
  Company Number: JP-PFIZER INC-202500140354

PATIENT

DRUGS (1)
  1. HALCION [Suspect]
     Active Substance: TRIAZOLAM
     Indication: Insomnia
     Route: 048

REACTIONS (4)
  - Victim of sexual abuse [Unknown]
  - Toxicity to various agents [Unknown]
  - Stupor [Unknown]
  - Oral mucosal discolouration [Unknown]
